FAERS Safety Report 19712805 (Version 1)
Quarter: 2021Q3

REPORT INFORMATION
  Report Type: Report from Study
  Country: US (occurrence: US)
  Receive Date: 20210816
  Receipt Date: 20210816
  Transmission Date: 20211014
  Serious: Yes (Hospitalization)
  Sender: FDA-Public Use
  Company Number: US-ROCHE-2889356

PATIENT
  Age: 65 Year
  Sex: Male
  Weight: 95.9 kg

DRUGS (1)
  1. PIRFENIDONE. [Suspect]
     Active Substance: PIRFENIDONE
     Indication: BRONCHIOLITIS OBLITERANS SYNDROME
     Dosage: 3 CAP 3 TIMES A DAY; ONGOING: YES
     Route: 048
     Dates: start: 20190208

REACTIONS (1)
  - Angina pectoris [Unknown]

NARRATIVE: CASE EVENT DATE: 20210804
